FAERS Safety Report 9385407 (Version 3)
Quarter: 2013Q3

REPORT INFORMATION
  Report Type: Spontaneous
  Country: US (occurrence: US)
  Receive Date: 20130705
  Receipt Date: 20130808
  Transmission Date: 20140515
  Serious: Yes (Other)
  Sender: FDA-Public Use
  Company Number: US-BAYER-2013-079439

PATIENT
  Age: 34 Year
  Sex: Female
  Weight: 58.97 kg

DRUGS (1)
  1. MIRENA [Suspect]
     Indication: CONTRACEPTION
     Dosage: 20 MCG/24HR, CONT
     Route: 015
     Dates: start: 201101

REACTIONS (9)
  - Vaginal infection [Recovered/Resolved]
  - Medical device discomfort [None]
  - Acne [Recovered/Resolved]
  - Device dislocation [Recovered/Resolved]
  - Menstruation delayed [None]
  - Device difficult to use [None]
  - Muscle spasms [None]
  - Unevaluable event [None]
  - Stress [None]
